FAERS Safety Report 7371879-9 (Version None)
Quarter: 2011Q1

REPORT INFORMATION
  Report Type: 
  Country: None (occurrence: None)
  Receive Date: 20110324
  Receipt Date: 20110317
  Transmission Date: 20110831
  Serious: Yes (Death)
  Sender: FDA-Public Use
  Company Number: US-ROCHE-766605

PATIENT
  Age: 30 Year
  Sex: Male

DRUGS (3)
  1. DIAZEPAM [Suspect]
     Dosage: ROUTE: INGESTION, ONGOING STATUS UNKNOWN AT THE TIME OF DEATH
     Route: 048
  2. MIRTAZAPINE [Suspect]
     Dosage: ROUTE: INGESTION, ONGOING STATUS UNKNOWN AT THE TIME OF DEATH
     Route: 048
  3. ACETAMINOPHEN W/ PROPOXYPHENE HCL [Suspect]
     Dosage: DRUG: ACETAMINOPHEN/PROPOXYPHENE, ROUTE: INGESTION, ONGOING STATUS UNKNOWN AT THE TIME OF DEATH
     Route: 048

REACTIONS (3)
  - TOXICITY TO VARIOUS AGENTS [None]
  - CARDIAC ARREST [None]
  - RESPIRATORY ARREST [None]
